FAERS Safety Report 4383068-0 (Version None)
Quarter: 2004Q2

REPORT INFORMATION
  Report Type: 
  Country: None (occurrence: None)
  Receive Date: 20040618
  Receipt Date: 20040610
  Transmission Date: 20050107
  Serious: No
  Sender: FDA-Public Use
  Company Number: CA-2004-026862

PATIENT
  Age: 53 Year
  Sex: Female

DRUGS (5)
  1. BETASERON [Suspect]
     Indication: PROGRESSIVE MULTIPLE SCLEROSIS
     Dosage: 8 MIU, EVERY 2D, SUBCUTANEOUS
     Route: 058
     Dates: start: 20000418
  2. BACLOFEN [Concomitant]
  3. EFFEXOR [Concomitant]
  4. CELEBREX [Concomitant]
  5. LIPITOR [Concomitant]

REACTIONS (1)
  - CHOLELITHIASIS [None]
